FAERS Safety Report 7479248-8 (Version None)
Quarter: 2011Q2

REPORT INFORMATION
  Report Type: 
  Country: None (occurrence: None)
  Receive Date: 20110513
  Receipt Date: 20110509
  Transmission Date: 20111010
  Serious: Yes (Other)
  Sender: FDA-Public Use
  Company Number: B0718687A

PATIENT
  Sex: Male
  Weight: 60 kg

DRUGS (1)
  1. ATOVAQUONE [Suspect]
     Dosage: 750MG TWICE PER DAY
     Route: 048
     Dates: start: 20110413, end: 20110415

REACTIONS (4)
  - CONFUSIONAL STATE [None]
  - APHASIA [None]
  - APRAXIA [None]
  - PYREXIA [None]
